FAERS Safety Report 5309096-6 (Version None)
Quarter: 2007Q2

REPORT INFORMATION
  Report Type: 
  Country: None (occurrence: None)
  Receive Date: 20070426
  Receipt Date: 20070419
  Transmission Date: 20071010
  Serious: Yes (Disabling)
  Sender: FDA-Public Use
  Company Number: AU-MERCK-0609AUS00145

PATIENT
  Sex: Male

DRUGS (1)
  1. ZOCOR [Suspect]
     Indication: BLOOD CHOLESTEROL ABNORMAL
     Route: 048
     Dates: end: 20060215

REACTIONS (5)
  - ARTHRALGIA [None]
  - ASTHENIA [None]
  - LETHARGY [None]
  - MUSCULAR WEAKNESS [None]
  - MYALGIA [None]
